FAERS Safety Report 25218470 (Version 3)
Quarter: 2025Q2

REPORT INFORMATION
  Report Type: Spontaneous
  Country: SK (occurrence: SK)
  Receive Date: 20250421
  Receipt Date: 20250616
  Transmission Date: 20250716
  Serious: Yes (Death, Hospitalization, Other)
  Sender: ROCHE
  Company Number: SK-ROCHE-10000262297

PATIENT
  Age: 72 Year
  Sex: Female

DRUGS (1)
  1. TECENTRIQ [Suspect]
     Active Substance: ATEZOLIZUMAB
     Indication: Lung neoplasm malignant
     Route: 065
     Dates: start: 202406

REACTIONS (4)
  - Death [Fatal]
  - Pneumonia chlamydial [Unknown]
  - Pleural effusion [Unknown]
  - Respiratory failure [Unknown]

NARRATIVE: CASE EVENT DATE: 20241001
